FAERS Safety Report 5966239-9 (Version None)
Quarter: 2008Q4

REPORT INFORMATION
  Report Type: 
  Country: None (occurrence: None)
  Receive Date: 20081125
  Receipt Date: 20081117
  Transmission Date: 20090506
  Serious: Yes (Hospitalization)
  Sender: FDA-Public Use
  Company Number: US-JNJFOC-20081104544

PATIENT
  Age: 51 Year
  Sex: Male
  Weight: 140.62 kg

DRUGS (6)
  1. MYLANTA MAXIMUM STRENGTH CHERRY [Suspect]
     Indication: FLATULENCE
     Dosage: 20-30 ML (4-6 TEASPOONS) DAILY
     Route: 048
  2. MAALOX [Suspect]
     Indication: DRUG USE FOR UNKNOWN INDICATION
  3. TUMS [Suspect]
     Indication: DRUG USE FOR UNKNOWN INDICATION
  4. GAS-X [Suspect]
     Indication: DRUG USE FOR UNKNOWN INDICATION
  5. TOPROL-XL [Concomitant]
     Indication: HYPERTENSION
  6. SOMA [Concomitant]
     Indication: MUSCLE SPASMS

REACTIONS (4)
  - CONSTIPATION [None]
  - ERUCTATION [None]
  - FLATULENCE [None]
  - WEIGHT DECREASED [None]
